FAERS Safety Report 9166975 (Version 1)
Quarter: 2013Q1

REPORT INFORMATION
  Report Type: Spontaneous
  Country: KR (occurrence: KR)
  Receive Date: 20130317
  Receipt Date: 20130317
  Transmission Date: 20140127
  Serious: Yes (Other)
  Sender: FDA-Public Use
  Company Number: PHHY2011KR13024

PATIENT
  Age: 68 None
  Sex: Female

DRUGS (1)
  1. GLIVEC [Suspect]
     Indication: CHRONIC MYELOID LEUKAEMIA
     Dosage: 400 MG, QID
     Route: 048
     Dates: start: 20070813

REACTIONS (7)
  - Implant site inflammation [Not Recovered/Not Resolved]
  - Otitis media [Recovering/Resolving]
  - Otorrhoea [Recovering/Resolving]
  - Tinnitus [Recovering/Resolving]
  - Toothache [Not Recovered/Not Resolved]
  - Vomiting [Recovered/Resolved]
  - Decreased appetite [Not Recovered/Not Resolved]
